FAERS Safety Report 17680549 (Version 1)
Quarter: 2020Q2

REPORT INFORMATION
  Report Type: Spontaneous
  Country: US (occurrence: US)
  Receive Date: 20200417
  Receipt Date: 20200417
  Transmission Date: 20200714
  Serious: Yes (Life-Threatening)
  Sender: FDA-Public Use
  Company Number: None

PATIENT
  Sex: Female

DRUGS (3)
  1. METHYLPREDNISOLONE 4MG TABLET DOSEPACK [Suspect]
     Active Substance: METHYLPREDNISOLONE
     Indication: ASTHMA
     Dosage: ?          QUANTITY:5 TABLET(S);?
     Route: 048
  2. MULTIVITAMIN [Concomitant]
     Active Substance: VITAMINS
  3. VERAPAMIL [Concomitant]
     Active Substance: VERAPAMIL HYDROCHLORIDE

REACTIONS (8)
  - Dysgeusia [None]
  - Urticaria [None]
  - Throat tightness [None]
  - Hypoaesthesia oral [None]
  - Burning sensation [None]
  - Paraesthesia [None]
  - Feeling hot [None]
  - Therapy cessation [None]

NARRATIVE: CASE EVENT DATE: 20200411
